FAERS Safety Report 4450885-8 (Version None)
Quarter: 2004Q3

REPORT INFORMATION
  Report Type: 
  Country: None (occurrence: None)
  Receive Date: 20040916
  Receipt Date: 20020102
  Transmission Date: 20050211
  Serious: Yes (Other)
  Sender: FDA-Public Use
  Company Number: US-BRISTOL-MYERS SQUIBB COMPANY-11708435

PATIENT
  Age: 29 Year
  Sex: Female

DRUGS (6)
  1. STADOL [Suspect]
     Indication: MIGRAINE
     Route: 045
     Dates: start: 19880101, end: 20010101
  2. STADOL [Suspect]
     Route: 042
     Dates: start: 19880101, end: 20010101
  3. OXYCONTIN [Concomitant]
  4. PHENERGAN HCL [Concomitant]
  5. VALIUM [Concomitant]
  6. LORCET-HD [Concomitant]

REACTIONS (1)
  - DEPENDENCE [None]
